FAERS Safety Report 4615741-0 (Version None)
Quarter: 2005Q1

REPORT INFORMATION
  Report Type: 
  Country: None (occurrence: None)
  Receive Date: 20050317
  Receipt Date: 20050301
  Transmission Date: 20050727
  Serious: Yes (Hospitalization)
  Sender: FDA-Public Use
  Company Number: 2005-00357

PATIENT
  Sex: Male

DRUGS (4)
  1. VELCADE [Suspect]
     Indication: MULTIPLE MYELOMA
     Dosage: 1.30 MG/M2, IV BOLUS
     Route: 040
  2. GLUCOPHAGE [Concomitant]
  3. ACYCLOVIR [Concomitant]
  4. BETA BLOCKING AGENTS [Concomitant]

REACTIONS (8)
  - DYSPNOEA EXERTIONAL [None]
  - FATIGUE [None]
  - HERPES ZOSTER [None]
  - OEDEMA [None]
  - OEDEMA PERIPHERAL [None]
  - PULMONARY CONGESTION [None]
  - RESPIRATORY FAILURE [None]
  - VIRAL PERICARDITIS [None]
